FAERS Safety Report 8465145 (Version 3)
Quarter: 2012Q4

REPORT INFORMATION
  Report Type: 
  Country: US (occurrence: US)
  Receive Date: 20120319
  Receipt Date: 20121115
  Transmission Date: 20130627
  Serious: Yes (Hospitalization, Other)
  Sender: FDA-Public Use
  Company Number: US-BAYER-2012-023581

PATIENT
  Age: 49 Year
  Sex: Female

DRUGS (9)
  1. YAZ [Suspect]
     Indication: ANXIETY
     Dosage: UNK
     Dates: start: 200708, end: 20090709
  2. ATACAND [CANDESARTAN CILEXETIL] [Concomitant]
     Dosage: UNK
     Dates: start: 20090216
  3. SIMVASTATIN [Concomitant]
     Dosage: UNK
     Dates: start: 20090216
  4. EFFEXOR [Concomitant]
     Dosage: UNK
     Dates: start: 20090216
  5. AMOXICILLIN [Concomitant]
     Dosage: UNK
     Dates: start: 20090406
  6. ADVIL [Concomitant]
     Dosage: UNK
     Dates: start: 20090406
  7. TUSSIN DM [Concomitant]
     Dosage: UNK
     Dates: start: 20090406
  8. LOSARTAN [Concomitant]
     Dosage: UNK
     Dates: start: 2004
  9. METFORMIN [Concomitant]
     Indication: DIABETES
     Dosage: UNK
     Dates: start: 2007

REACTIONS (9)
  - Intracranial venous sinus thrombosis [None]
  - Deep vein thrombosis [None]
  - General physical health deterioration [None]
  - Injury [None]
  - Pain [None]
  - Emotional distress [None]
  - Pain [None]
  - Anxiety [None]
  - Off label use [None]
